FAERS Safety Report 7436792-7 (Version None)
Quarter: 2011Q2

REPORT INFORMATION
  Report Type: 
  Country: None (occurrence: None)
  Receive Date: 20110426
  Receipt Date: 20110420
  Transmission Date: 20111010
  Serious: No
  Sender: FDA-Public Use
  Company Number: US-PFIZER INC-2011086709

PATIENT
  Sex: Female
  Weight: 52 kg

DRUGS (4)
  1. VITAMIN E [Concomitant]
     Dosage: UNK
  2. ASCORBIC ACID [Concomitant]
     Dosage: UNK
  3. CALCIUM [Concomitant]
     Dosage: UNK
  4. ESTRING [Suspect]
     Indication: MENOPAUSAL SYMPTOMS
     Dosage: 2 MG, EVERY 3 MONTHS
     Route: 067
     Dates: start: 20090101

REACTIONS (7)
  - BLOOD URINE PRESENT [None]
  - VITAMIN D DECREASED [None]
  - HOT FLUSH [None]
  - HEADACHE [None]
  - BLOOD PARATHYROID HORMONE INCREASED [None]
  - BREAST TENDERNESS [None]
  - NIPPLE PAIN [None]
